FAERS Safety Report 19573805 (Version 2)
Quarter: 2021Q3

REPORT INFORMATION
  Report Type: Spontaneous
  Country: US (occurrence: US)
  Receive Date: 20210718
  Receipt Date: 20210804
  Transmission Date: 20211014
  Serious: No
  Sender: FDA-Public Use
  Company Number: US-009507513-2107USA003496

PATIENT
  Age: 86 Year
  Sex: Female

DRUGS (5)
  1. PRILOSEC [Concomitant]
     Active Substance: OMEPRAZOLE MAGNESIUM
  2. BOTOX [Concomitant]
     Active Substance: ONABOTULINUMTOXINA
  3. TRUSOPT [Suspect]
     Active Substance: DORZOLAMIDE HYDROCHLORIDE
     Dosage: ONE DROP IN EACH EYE TWICE A DAY, STRENGTH: 20 MG/ML
     Route: 047
     Dates: start: 20210707
  4. TRUSOPT [Suspect]
     Active Substance: DORZOLAMIDE HYDROCHLORIDE
     Indication: GLAUCOMA
     Dosage: ONE DROP IN EACH EYE TWICE A DAY, STRENGTH: 20 MG/ML
     Route: 047
     Dates: start: 20210224
  5. MYLANTA [RANITIDINE HYDROCHLORIDE] [Suspect]
     Active Substance: RANITIDINE HYDROCHLORIDE
     Indication: ANTACID THERAPY
     Dosage: UNK
     Dates: start: 20210709

REACTIONS (4)
  - Abdominal pain upper [Not Recovered/Not Resolved]
  - Incorrect dose administered [Unknown]
  - Ill-defined disorder [Not Recovered/Not Resolved]
  - Sensation of foreign body [Not Recovered/Not Resolved]

NARRATIVE: CASE EVENT DATE: 20210707
